FAERS Safety Report 8159664-1 (Version None)
Quarter: 2012Q1

REPORT INFORMATION
  Report Type: 
  Country: None (occurrence: None)
  Receive Date: 20120223
  Receipt Date: 20120216
  Transmission Date: 20120608
  Serious: Yes (Death, Hospitalization)
  Sender: FDA-Public Use
  Company Number: DE-ACTELION-A-US2012-61398

PATIENT

DRUGS (5)
  1. DESAL [Concomitant]
  2. MINADEX [Concomitant]
  3. VENTAVIS [Suspect]
     Indication: PULMONARY HYPERTENSION
     Route: 055
  4. TRACLEER [Concomitant]
     Indication: PULMONARY ARTERIAL HYPERTENSION
     Route: 048
  5. ASPIRIN [Concomitant]

REACTIONS (5)
  - MALAISE [None]
  - VOMITING [None]
  - OEDEMA [None]
  - DEATH [None]
  - NAUSEA [None]
